FAERS Safety Report 4352378-5 (Version None)
Quarter: 2004Q2

REPORT INFORMATION
  Report Type: 
  Country: None (occurrence: None)
  Receive Date: 20040423
  Receipt Date: 20030408
  Transmission Date: 20050107
  Serious: Yes (Other)
  Sender: FDA-Public Use
  Company Number: CIP03001179

PATIENT
  Sex: Female

DRUGS (1)
  1. MACRODANTIN [Suspect]
     Indication: URINARY TRACT INFECTION
     Dosage: 50 MG AT BEDTIME, ORAL
     Route: 048
     Dates: start: 20010101

REACTIONS (1)
  - PULMONARY FIBROSIS [None]
